FAERS Safety Report 18188575 (Version 1)
Quarter: 2020Q3

REPORT INFORMATION
  Report Type: Spontaneous
  Country: FR (occurrence: FR)
  Receive Date: 20200824
  Receipt Date: 20200824
  Transmission Date: 20201103
  Serious: Yes (Hospitalization)
  Sender: FDA-Public Use
  Company Number: FR-ROCHE-2663101

PATIENT
  Age: 32 Year
  Sex: Female
  Weight: 108 kg

DRUGS (4)
  1. VALIUM [Suspect]
     Active Substance: DIAZEPAM
     Indication: ALCOHOLISM
     Dosage: INCONNU
     Route: 048
  2. BROMAZEPAM [Suspect]
     Active Substance: BROMAZEPAM
     Indication: PRODUCT USED FOR UNKNOWN INDICATION
     Dosage: MOST RECENT DOSE PRIOR TO AE /MAY/2020
     Route: 048
     Dates: start: 202005
  3. THERALENE [Suspect]
     Active Substance: TRIMEPRAZINE
     Indication: PRODUCT USED FOR UNKNOWN INDICATION
     Dosage: INCONNUE
     Route: 048
  4. TERCIAN [Suspect]
     Active Substance: CYAMEMAZINE
     Indication: DEPRESSION
     Dosage: INCONNUE
     Route: 048

REACTIONS (2)
  - Somnolence [Recovered/Resolved]
  - Poisoning deliberate [Recovered/Resolved]

NARRATIVE: CASE EVENT DATE: 20200504
